FAERS Safety Report 8600882-3 (Version None)
Quarter: 2012Q3

REPORT INFORMATION
  Report Type: 
  Country: None (occurrence: None)
  Receive Date: 20120817
  Receipt Date: 20120807
  Transmission Date: 20120928
  Serious: No
  Sender: FDA-Public Use
  Company Number: US-BAYER-2012-082440

PATIENT
  Age: 25 Year
  Sex: Male
  Weight: 72.562 kg

DRUGS (3)
  1. ALEVE (CAPLET) [Suspect]
     Indication: BACK PAIN
     Dosage: 2 DF
     Route: 048
     Dates: start: 20120806, end: 20120806
  2. HYDROCODONE [Concomitant]
  3. VICODIN [Concomitant]

REACTIONS (4)
  - LETHARGY [None]
  - ABDOMINAL DISCOMFORT [None]
  - FATIGUE [None]
  - FEELING ABNORMAL [None]
